FAERS Safety Report 4824856-3 (Version None)
Quarter: 2005Q4

REPORT INFORMATION
  Report Type: 
  Country: None (occurrence: None)
  Receive Date: 20051014
  Receipt Date: 20050628
  Transmission Date: 20060501
  Serious: No
  Sender: FDA-Public Use
  Company Number: 2005SP001641

PATIENT
  Age: 52 Year
  Sex: Male
  Weight: 102.0593 kg

DRUGS (18)
  1. LUNESTA [Suspect]
     Indication: INSOMNIA
     Dosage: 3 MG;HS;ORAL
     Route: 048
     Dates: start: 20050621, end: 20050626
  2. SINEMET [Concomitant]
  3. NEURONTIN [Concomitant]
  4. GUAIFENESIN [Concomitant]
  5. PRILOSEC [Concomitant]
  6. TRAMADOL HCL [Concomitant]
  7. TOPROL-XL [Concomitant]
  8. ATORVASTATIN CALCIUM [Concomitant]
  9. ASPIRIN [Concomitant]
  10. PLAVIX [Concomitant]
  11. ALTACE [Concomitant]
  12. ATIVAN [Concomitant]
  13. SYNTHROID [Concomitant]
  14. LANOXIN [Concomitant]
  15. WARFARIN SODIUM [Concomitant]
  16. WELLBUTRIN [Concomitant]
  17. DYAZIDE [Concomitant]
  18. LACTOSE [Concomitant]

REACTIONS (3)
  - DRUG INEFFECTIVE [None]
  - DYSGEUSIA [None]
  - INSOMNIA [None]
